FAERS Safety Report 4362343-X (Version None)
Quarter: 2004Q2

REPORT INFORMATION
  Report Type: 
  Country: None (occurrence: None)
  Receive Date: 20040521
  Receipt Date: 20040510
  Transmission Date: 20050107
  Serious: Yes (Hospitalization)
  Sender: FDA-Public Use
  Company Number: US-BRISTOL-MYERS SQUIBB COMPANY-12583332

PATIENT
  Age: 74 Year
  Sex: Male

DRUGS (3)
  1. COUMADIN [Suspect]
     Dosage: WAS RECEIVING THERAPY WHEN HOSPITALIZED FOR ATRIAL FIBRILLLATION.
     Dates: end: 20040503
  2. LOVENOX [Suspect]
     Indication: ATRIAL FIBRILLATION
     Dosage: 1MG/KG TWICE A DAY (TOTAL DOSE: 120MG Q 12HRS SC).
     Route: 058
     Dates: start: 20040401, end: 20040503
  3. CARDIAC MEDICATIONS [Concomitant]

REACTIONS (8)
  - ATRIAL FIBRILLATION [None]
  - BLOOD CREATININE INCREASED [None]
  - HAEMATOMA [None]
  - HAEMORRHAGE [None]
  - HYPOTENSION [None]
  - INTERNATIONAL NORMALISED RATIO DECREASED [None]
  - RENAL FAILURE [None]
  - RESPIRATORY FAILURE [None]
